FAERS Safety Report 11358488 (Version 1)
Quarter: 2015Q3

REPORT INFORMATION
  Report Type: Spontaneous
  Country: US (occurrence: US)
  Receive Date: 20150803
  Receipt Date: 20150803
  Transmission Date: 20151125
  Serious: No
  Sender: FDA-Public Use
  Company Number: US-ELI_LILLY_AND_COMPANY-US_0505116886

PATIENT
  Sex: Male
  Weight: 104 kg

DRUGS (7)
  1. GINSENG                            /00480901/ [Concomitant]
  2. ZYPREXA [Suspect]
     Active Substance: OLANZAPINE
     Indication: BIPOLAR DISORDER
     Dosage: UNK, UNKNOWN
     Dates: start: 20010417
  3. ZYPREXA [Suspect]
     Active Substance: OLANZAPINE
     Dosage: 10 MG, UNK
     Dates: start: 20011220
  4. VITAMINS-MINERALS THERAPEUTIC [Concomitant]
  5. RISPERIDONE. [Concomitant]
     Active Substance: RISPERIDONE
  6. ZYPREXA [Suspect]
     Active Substance: OLANZAPINE
     Dates: start: 20030117
  7. CELEXA [Concomitant]
     Active Substance: CITALOPRAM HYDROBROMIDE

REACTIONS (4)
  - Mental impairment [Unknown]
  - Diabetes mellitus [Not Recovered/Not Resolved]
  - Adverse event [Unknown]
  - Dyskinesia [Unknown]
